FAERS Safety Report 9209431 (Version 1)
Quarter: 2013Q2

REPORT INFORMATION
  Report Type: Spontaneous
  Country: US (occurrence: None)
  Receive Date: 20130403
  Receipt Date: 20130403
  Transmission Date: 20140414
  Serious: Yes (Hospitalization)
  Sender: FDA-Public Use
  Company Number: None

PATIENT
  Age: 64 Year
  Sex: Male
  Weight: 79.38 kg

DRUGS (2)
  1. AMOXICILLIN + CLAVULANIC ACID [Suspect]
     Indication: OROPHARYNGEAL PAIN
     Dosage: 875 MG  2 DAILY  MOUTH
     Route: 048
     Dates: start: 20130308, end: 20130310
  2. AMOXICILLIN + CLAVULANIC ACID [Suspect]
     Indication: COUGH
     Dosage: 875 MG  2 DAILY  MOUTH
     Route: 048
     Dates: start: 20130308, end: 20130310

REACTIONS (2)
  - Guillain-Barre syndrome [None]
  - Diarrhoea [None]
